FAERS Safety Report 24964049 (Version 2)
Quarter: 2025Q2

REPORT INFORMATION
  Report Type: Report from Study
  Country: US (occurrence: US)
  Receive Date: 20250213
  Receipt Date: 20250402
  Transmission Date: 20250716
  Serious: Yes (Hospitalization, Other)
  Sender: TAKEDA
  Company Number: US-TAKEDA-2024TUS093183

PATIENT
  Sex: Female
  Weight: 76.19 kg

DRUGS (2)
  1. FRUQUINTINIB [Suspect]
     Active Substance: FRUQUINTINIB
     Indication: Colon cancer
  2. FRUQUINTINIB [Suspect]
     Active Substance: FRUQUINTINIB

REACTIONS (13)
  - Fluid retention [Unknown]
  - Colon cancer [Unknown]
  - Product dose omission issue [Unknown]
  - Product use issue [Unknown]
  - Dizziness [Unknown]
  - Abdominal pain upper [Unknown]
  - Dyspepsia [Unknown]
  - Constipation [Unknown]
  - Dry skin [Unknown]
  - Acne [Unknown]
  - Drug ineffective [Unknown]
  - Rash [Unknown]
  - Blood pressure increased [Unknown]
